FAERS Safety Report 13516687 (Version 2)
Quarter: 2017Q2

REPORT INFORMATION
  Report Type: Spontaneous
  Country: US (occurrence: US)
  Receive Date: 20170505
  Receipt Date: 20170523
  Transmission Date: 20170830
  Serious: Yes (Hospitalization)
  Sender: FDA-Public Use
  Company Number: US-BIOGEN-2017BI00396373

PATIENT
  Age: 75 Year
  Sex: Male

DRUGS (4)
  1. BACLOFEN. [Concomitant]
     Active Substance: BACLOFEN
     Indication: PRODUCT USED FOR UNKNOWN INDICATION
     Route: 065
  2. AMITRIPTYLINE [Concomitant]
     Active Substance: AMITRIPTYLINE
     Indication: PRODUCT USED FOR UNKNOWN INDICATION
     Route: 065
  3. DILANTIN [Concomitant]
     Active Substance: PHENYTOIN
     Indication: MULTIPLE SCLEROSIS
     Route: 065
  4. TECFIDERA [Suspect]
     Active Substance: DIMETHYL FUMARATE
     Indication: MULTIPLE SCLEROSIS
     Route: 065
     Dates: start: 20150429

REACTIONS (11)
  - Burning sensation [Not Recovered/Not Resolved]
  - Diarrhoea [Recovered/Resolved]
  - Rash [Recovered/Resolved]
  - Mobility decreased [Unknown]
  - Adverse reaction [Recovered/Resolved]
  - Dementia [Not Recovered/Not Resolved]
  - General symptom [Unknown]
  - Fall [Recovered/Resolved]
  - Cognitive disorder [Recovered/Resolved]
  - Abasia [Not Recovered/Not Resolved]
  - Multiple sclerosis plaque [Not Recovered/Not Resolved]

NARRATIVE: CASE EVENT DATE: 201604
